FAERS Safety Report 13097145 (Version 1)
Quarter: 2017Q1

REPORT INFORMATION
  Report Type: Spontaneous
  Country: US (occurrence: US)
  Receive Date: 20170109
  Receipt Date: 20170109
  Transmission Date: 20170428
  Serious: Yes (Other)
  Sender: FDA-Public Use
  Company Number: US-WARNER CHILCOTT, LLC-1061789

PATIENT
  Sex: Female
  Weight: 68.18 kg

DRUGS (2)
  1. PRENATAL VITAMINS [Concomitant]
     Active Substance: VITAMINS
  2. LO LOESTRIN FE [Suspect]
     Active Substance: ETHINYL ESTRADIOL\NORETHINDRONE ACETATE
     Indication: CONTRACEPTION
     Route: 048
     Dates: start: 201507, end: 201602

REACTIONS (3)
  - Pregnancy on oral contraceptive [None]
  - Polyhydramnios [None]
  - Maternal exposure timing unspecified [None]
